FAERS Safety Report 5744069-0 (Version None)
Quarter: 2008Q2

REPORT INFORMATION
  Report Type: 
  Country: None (occurrence: None)
  Receive Date: 20080516
  Receipt Date: 20080516
  Transmission Date: 20081010
  Serious: Yes (Life-Threatening, Hospitalization)
  Sender: FDA-Public Use
  Company Number: None

PATIENT
  Age: 60 Year
  Sex: Male

DRUGS (1)
  1. IBUROFEN [Suspect]
     Dosage: PRN
     Dates: end: 20080304

REACTIONS (1)
  - DUODENAL ULCER HAEMORRHAGE [None]
